FAERS Safety Report 5692425-1 (Version None)
Quarter: 2008Q2

REPORT INFORMATION
  Report Type: 
  Country: None (occurrence: None)
  Receive Date: 20080402
  Receipt Date: 20070921
  Transmission Date: 20081010
  Serious: No
  Sender: FDA-Public Use
  Company Number: US-BAYER-US-2007-033583

PATIENT
  Age: 60 Year
  Sex: Female
  Weight: 82 kg

DRUGS (3)
  1. LEUKINE [Suspect]
     Indication: NEUTROPENIA
     Dosage: UNIT DOSE: 500 ?G
     Route: 058
     Dates: start: 20060905, end: 20060911
  2. ADRIAMYCIN [Concomitant]
     Indication: BREAST CANCER
     Route: 042
     Dates: start: 20060731, end: 20060922
  3. CYTOXAN [Concomitant]
     Indication: BREAST CANCER
     Route: 042
     Dates: start: 20060731, end: 20060922

REACTIONS (1)
  - TACHYCARDIA [None]
